FAERS Safety Report 10375095 (Version 1)
Quarter: 2014Q1

REPORT INFORMATION
  Report Type: Spontaneous
  Country: US (occurrence: None)
  Receive Date: 20140306
  Receipt Date: 20140306
  Transmission Date: 20141002
  Serious: Yes (Hospitalization)
  Sender: FDA-Public Use
  Company Number: 163-21880-12114145

PATIENT
  Age: 77 Year
  Sex: Male

DRUGS (6)
  1. REVLIMID [Suspect]
     Indication: PLASMA CELL MYELOMA
     Dosage: 25 MG, 21 IN 21 D, PO
     Route: 048
     Dates: start: 20121004, end: 20121206
  2. LASIX (FUROSEMIDE) (UNKNOWN) [Concomitant]
  3. ZAROXOLYN (METOLAZONE) (UNKNOWN) [Concomitant]
  4. ALLOPURINOL (ALLOPURINOL) (UNKNOWN) [Concomitant]
  5. POTASSIUM (POTASSIUM) (UNKNOWN) [Concomitant]
  6. METOLAZONE (ALL OTHER THERAPEUTIC PRODUCTS) (UNKNOWN) [Concomitant]

REACTIONS (1)
  - Pulmonary embolism [None]
